FAERS Safety Report 24118163 (Version 1)
Quarter: 2024Q3

REPORT INFORMATION
  Report Type: Report from Study
  Country: US (occurrence: None)
  Receive Date: 20240722
  Receipt Date: 20240722
  Transmission Date: 20241016
  Serious: Yes (Other)
  Sender: ASTRAZENECA
  Company Number: 2022A055307

PATIENT
  Sex: Female

DRUGS (1)
  1. LYNPARZA [Suspect]
     Active Substance: OLAPARIB
     Indication: Ovarian cancer
     Route: 048
     Dates: start: 20211013

REACTIONS (5)
  - Benign neoplasm [Unknown]
  - Tumour marker abnormal [Unknown]
  - Fatigue [Unknown]
  - Red cell distribution width increased [Unknown]
  - Arthralgia [Not Recovered/Not Resolved]
